FAERS Safety Report 5488138-1 (Version None)
Quarter: 2007Q4

REPORT INFORMATION
  Report Type: 
  Country: None (occurrence: None)
  Receive Date: 20071017
  Receipt Date: 20071009
  Transmission Date: 20080405
  Serious: Yes (Hospitalization)
  Sender: FDA-Public Use
  Company Number: FR-ASTRAZENECA-2007CG01431

PATIENT
  Age: 52 Year
  Sex: Male

DRUGS (3)
  1. OMEPRAZOLE [Suspect]
     Route: 048
     Dates: start: 20070129, end: 20070203
  2. NAPROSYN [Suspect]
     Indication: TOOTH ABSCESS
     Route: 048
     Dates: start: 20070129, end: 20070203
  3. RODOGYL [Suspect]
     Indication: TOOTH ABSCESS
     Route: 048
     Dates: start: 20070129, end: 20070205

REACTIONS (4)
  - ARTHRALGIA [None]
  - COUGH [None]
  - DYSPNOEA [None]
  - EOSINOPHILIC PNEUMONIA [None]
